FAERS Safety Report 8887257 (Version 1)
Quarter: 2012Q4

REPORT INFORMATION
  Report Type: 
  Country: US (occurrence: US)
  Receive Date: 20121101
  Receipt Date: 20121101
  Transmission Date: 20130627
  Serious: Yes (Hospitalization, Other)
  Sender: FDA-Public Use
  Company Number: US-ALEXION PHARMACEUTICALS INC.-A201202056

PATIENT
  Sex: Male

DRUGS (1)
  1. SOLIRIS 300MG [Suspect]
     Indication: MALIGNANT ATROPHIC PAPULOSIS
     Route: 042

REACTIONS (6)
  - Atrial fibrillation [Unknown]
  - Cerebrovascular accident [Unknown]
  - Embolism [Unknown]
  - Air embolism [Unknown]
  - Atrial septal defect [Unknown]
  - Cardiac aneurysm [Unknown]
